FAERS Safety Report 11089100 (Version 1)
Quarter: 2015Q2

REPORT INFORMATION
  Report Type: Spontaneous
  Country: BR (occurrence: BR)
  Receive Date: 20150505
  Receipt Date: 20150505
  Transmission Date: 20150821
  Serious: Yes (Hospitalization)
  Sender: FDA-Public Use
  Company Number: BR-009507513-1504BRA023747

PATIENT
  Age: 69 Year
  Sex: Male
  Weight: 78 kg

DRUGS (2)
  1. VYTORIN [Suspect]
     Active Substance: EZETIMIBE\SIMVASTATIN
     Indication: BLOOD CHOLESTEROL INCREASED
     Dosage: 1 DF, QPM
     Route: 048
     Dates: start: 2009, end: 201310
  2. OMEPRAZOLE. [Concomitant]
     Active Substance: OMEPRAZOLE
     Indication: GASTRITIS
     Dosage: 20 MG, QAM
     Route: 048
     Dates: start: 2010

REACTIONS (4)
  - Drug hypersensitivity [Recovered/Resolved]
  - Cataract [Unknown]
  - Back pain [Recovered/Resolved]
  - Nasal polyps [Recovered/Resolved]

NARRATIVE: CASE EVENT DATE: 2010
